FAERS Safety Report 21372109 (Version 1)
Quarter: 2022Q3

REPORT INFORMATION
  Report Type: Spontaneous
  Country: SE (occurrence: SE)
  Receive Date: 20220923
  Receipt Date: 20220923
  Transmission Date: 20221027
  Serious: Yes (Other)
  Sender: FDA-Public Use
  Company Number: None

PATIENT
  Sex: Female

DRUGS (1)
  1. BOTOX [Suspect]
     Active Substance: ONABOTULINUMTOXINA
     Indication: Incontinence
     Dosage: UNK UNK, SINGLE
     Dates: start: 20191113, end: 20191113

REACTIONS (1)
  - Retinal vascular thrombosis [Unknown]

NARRATIVE: CASE EVENT DATE: 20191125
